FAERS Safety Report 6255711-2 (Version None)
Quarter: 2009Q3

REPORT INFORMATION
  Report Type: 
  Country: None (occurrence: None)
  Receive Date: 20090701
  Receipt Date: 20090624
  Transmission Date: 20100115
  Serious: Yes (Hospitalization)
  Sender: FDA-Public Use
  Company Number: 2009JP002011

PATIENT
  Age: 64 Year
  Sex: Male
  Weight: 58 kg

DRUGS (2)
  1. VESICARE [Suspect]
     Indication: HYPERTONIC BLADDER
     Dosage: 2.5 MG, UID/QD, ORAL
     Route: 048
     Dates: start: 20090209
  2. TAMSULOSIN HCL [Concomitant]

REACTIONS (2)
  - BLOOD URINE [None]
  - PROSTATITIS [None]
